FAERS Safety Report 6315547-0 (Version None)
Quarter: 2009Q3

REPORT INFORMATION
  Report Type: 
  Country: None (occurrence: None)
  Receive Date: 20090818
  Receipt Date: 20090806
  Transmission Date: 20100115
  Serious: Yes (Other)
  Sender: FDA-Public Use
  Company Number: 349767

PATIENT
  Sex: Male

DRUGS (1)
  1. (PHENYTOIN) [Suspect]
     Dosage: INTRAVENOUS
     Route: 042

REACTIONS (3)
  - BLISTER [None]
  - ERYTHEMA [None]
  - OEDEMA PERIPHERAL [None]
